FAERS Safety Report 19764227 (Version 3)
Quarter: 2021Q3

REPORT INFORMATION
  Report Type: Report from Study
  Country: US (occurrence: US)
  Receive Date: 20210830
  Receipt Date: 20210909
  Transmission Date: 20211014
  Serious: Yes (Death, Hospitalization)
  Sender: FDA-Public Use
  Company Number: US-ROCHE-2899806

PATIENT
  Age: 61 Year
  Sex: Male
  Weight: 74.7 kg

DRUGS (9)
  1. OBINUTUZUMAB. [Suspect]
     Active Substance: OBINUTUZUMAB
     Indication: FOLLICULAR LYMPHOMA
     Dosage: MOST RECENT DOSE OF OBINUTUZUMAB ON 18/AUG/2021 CYCLE 19 (C 19).
     Route: 042
     Dates: start: 20190711
  2. BENDAMUSTINE [Suspect]
     Active Substance: BENDAMUSTINE
     Indication: FOLLICULAR LYMPHOMA
     Dosage: MOST RECENT DOSE OF BENDAMUSTINE (180 MG) ON 05/DEC/2019 CYCLE 6 (C 6).
     Route: 042
     Dates: start: 20190711
  3. HYDROCHLORZIDE [Concomitant]
     Active Substance: HYDROCHLOROTHIAZIDE
     Indication: HYPERTENSION
     Route: 048
     Dates: start: 20190711
  4. LISINOPRIL. [Concomitant]
     Active Substance: LISINOPRIL
     Indication: HYPERTENSION
     Route: 048
     Dates: start: 20191204
  5. VENETOCLAX. [Suspect]
     Active Substance: VENETOCLAX
     Indication: FOLLICULAR LYMPHOMA
     Dosage: MOST RECENT DOSE OF VENETOCLAX ON 24/AUG/2021 CYCLE 19 (C 19).
     Route: 048
     Dates: start: 20190807
  6. ZOVIRAX [Concomitant]
     Active Substance: ACYCLOVIR
     Indication: VIRAL INFECTION
     Route: 048
     Dates: start: 20191025
  7. PERCOCET [Concomitant]
     Active Substance: ACETAMINOPHEN\OXYCODONE HYDROCHLORIDE
     Indication: PAIN
     Dosage: 10/325
     Route: 048
     Dates: start: 20210125
  8. QUETIAPINE. [Concomitant]
     Active Substance: QUETIAPINE
     Route: 048
     Dates: start: 20210624
  9. REMERON [Concomitant]
     Active Substance: MIRTAZAPINE
     Indication: DEPRESSION
     Route: 048
     Dates: start: 20191204

REACTIONS (1)
  - Myocarditis [Fatal]

NARRATIVE: CASE EVENT DATE: 20210824
